FAERS Safety Report 5356434-4 (Version None)
Quarter: 2007Q2

REPORT INFORMATION
  Report Type: 
  Country: None (occurrence: None)
  Receive Date: 20070612
  Receipt Date: 20070601
  Transmission Date: 20071010
  Serious: Yes (Life-Threatening)
  Sender: FDA-Public Use
  Company Number: 6034143

PATIENT
  Age: 83 Year
  Sex: Male

DRUGS (7)
  1. BISOPROLOL FUMARATE [Suspect]
     Indication: DRUG USE FOR UNKNOWN INDICATION
     Dosage: 10 MG (10 MG, 1 D)
     Route: 048
     Dates: start: 20060803, end: 20070327
  2. COSOPT [Suspect]
     Indication: GLAUCOMA
     Route: 047
     Dates: end: 20070327
  3. CRESTOR [Suspect]
     Indication: DRUG USE FOR UNKNOWN INDICATION
     Dosage: 5 MG (5 MG, 1 D)
     Route: 048
     Dates: start: 20061001, end: 20070327
  4. CORDARONE [Suspect]
     Indication: DRUG USE FOR UNKNOWN INDICATION
     Dosage: 100 MG (100 MG, 1 D)
     Route: 048
     Dates: start: 20040701, end: 20070327
  5. TRIAMTEC(5 MG, CAPSULE) (RAMIPRIL) [Suspect]
     Indication: DRUG USE FOR UNKNOWN INDICATION
     Dosage: 10 MG (10 MG, 1 D)
     Route: 048
     Dates: start: 20061001, end: 20070327
  6. MOPRAL(CAPSULE) (OMEPRAZOLE) [Concomitant]
  7. PREVISCAN(TABLET) (FLUINDIONE) [Concomitant]

REACTIONS (6)
  - ALVEOLITIS [None]
  - GENERAL PHYSICAL HEALTH DETERIORATION [None]
  - HAEMOPTYSIS [None]
  - INTERSTITIAL LUNG DISEASE [None]
  - OVERDOSE [None]
  - PLEURISY [None]
